FAERS Safety Report 21583030 (Version 1)
Quarter: 2022Q4

REPORT INFORMATION
  Report Type: Spontaneous
  Country: US (occurrence: US)
  Receive Date: 20221111
  Receipt Date: 20221111
  Transmission Date: 20230113
  Serious: Yes (Hospitalization)
  Sender: FDA-Public Use
  Company Number: US-MYLANLABS-2022M1123889

PATIENT
  Age: 49 Year
  Sex: Female

DRUGS (2)
  1. INSULIN GLARGINE [Suspect]
     Active Substance: INSULIN GLARGINE
     Indication: Diabetic ketoacidosis
     Dosage: UNK; DRIP
     Route: 065
  2. SODIUM CHLORIDE [Suspect]
     Active Substance: SODIUM CHLORIDE
     Indication: Metabolic acidosis
     Dosage: UNK
     Route: 042

REACTIONS (1)
  - Drug ineffective [Unknown]
